FAERS Safety Report 18399799 (Version 1)
Quarter: 2020Q4

REPORT INFORMATION
  Report Type: Spontaneous
  Country: US (occurrence: US)
  Receive Date: 20201019
  Receipt Date: 20201019
  Transmission Date: 20210114
  Serious: No
  Sender: FDA-Public Use
  Company Number: US-ALLERGAN-2022040US

PATIENT
  Sex: Female

DRUGS (2)
  1. VRAYLAR [Suspect]
     Active Substance: CARIPRAZINE
     Indication: PRODUCT USED FOR UNKNOWN INDICATION
     Dosage: 4.5 MG, BID
     Route: 065
  2. VRAYLAR [Suspect]
     Active Substance: CARIPRAZINE
     Dosage: 3 MG, BID
     Route: 065
     Dates: start: 20191226

REACTIONS (1)
  - Off label use [Unknown]
